FAERS Safety Report 7530835-8 (Version None)
Quarter: 2011Q2

REPORT INFORMATION
  Report Type: 
  Country: None (occurrence: None)
  Receive Date: 20110607
  Receipt Date: 20110525
  Transmission Date: 20111010
  Serious: Yes (Other)
  Sender: FDA-Public Use
  Company Number: US-MYLANLABS-2011S1011110

PATIENT
  Age: 13 Year
  Sex: Male
  Weight: 53 kg

DRUGS (6)
  1. VECURONIUM BROMIDE [Concomitant]
     Indication: HYPOTONIA
     Route: 065
  2. DESFLURANE [Suspect]
     Indication: GENERAL ANAESTHESIA
     Route: 055
  3. ONDANSETRON [Suspect]
     Indication: PROCEDURAL NAUSEA
     Route: 065
  4. SEVOFLURANE [Suspect]
     Indication: GENERAL ANAESTHESIA
     Route: 055
  5. MEXILETINE HYDROCHLORIDE [Concomitant]
     Indication: LONG QT SYNDROME
     Dosage: 300MG
     Route: 065
  6. NADOLOL [Concomitant]
     Indication: LONG QT SYNDROME
     Route: 065

REACTIONS (2)
  - EXTRASYSTOLES [None]
  - VENTRICULAR TACHYCARDIA [None]
